FAERS Safety Report 23091344 (Version 1)
Quarter: 2023Q4

REPORT INFORMATION
  Report Type: Spontaneous
  Country: CN (occurrence: CN)
  Receive Date: 20231020
  Receipt Date: 20231020
  Transmission Date: 20240110
  Serious: Yes (Life-Threatening, Hospitalization, Other)
  Sender: FDA-Public Use
  Company Number: CN-009507513-2310CHN008441

PATIENT
  Age: 49 Year
  Sex: Male
  Weight: 56 kg

DRUGS (6)
  1. KEYTRUDA [Suspect]
     Active Substance: PEMBROLIZUMAB
     Indication: Squamous cell carcinoma of lung
     Dosage: 200MG ONCE ON INFUSION DAY Q3W
     Route: 041
     Dates: start: 20230726, end: 20230726
  2. KEYTRUDA [Suspect]
     Active Substance: PEMBROLIZUMAB
     Dosage: 200MG ONCE ON INFUSION DAY Q3W
     Route: 041
     Dates: start: 20230816
  3. PACLITAXEL [Suspect]
     Active Substance: PACLITAXEL
     Indication: Squamous cell carcinoma of lung
     Dosage: 300MG DAY 1
     Dates: start: 20230726
  4. PACLITAXEL [Suspect]
     Active Substance: PACLITAXEL
     Dosage: 300MG DAY 1
     Dates: start: 20230816
  5. CARBOPLATIN [Suspect]
     Active Substance: CARBOPLATIN
     Indication: Squamous cell carcinoma of lung
     Dosage: 550MG DAY 1
     Dates: start: 20230726
  6. CARBOPLATIN [Suspect]
     Active Substance: CARBOPLATIN
     Dosage: 550MG DAY 1
     Dates: start: 20230816

REACTIONS (6)
  - Hepatic failure [Recovering/Resolving]
  - Pyrexia [Unknown]
  - Therapeutic product effect incomplete [Unknown]
  - Hiccups [Unknown]
  - Immune-mediated dermatitis [Unknown]
  - Rash [Unknown]

NARRATIVE: CASE EVENT DATE: 20230101
